FAERS Safety Report 7287824-0 (Version None)
Quarter: 2011Q1

REPORT INFORMATION
  Report Type: 
  Country: None (occurrence: None)
  Receive Date: 20110211
  Receipt Date: 20110203
  Transmission Date: 20110831
  Serious: No
  Sender: FDA-Public Use
  Company Number: US-PFIZER INC-2011025827

PATIENT
  Sex: Male

DRUGS (2)
  1. LIPITOR [Suspect]
     Dosage: 40 MG, 2 X 20 MG TABLETS
     Dates: start: 20060101
  2. LIPITOR [Suspect]
     Dosage: 80 MG, UNK

REACTIONS (2)
  - DRUG ADMINISTRATION ERROR [None]
  - DYSPHAGIA [None]
